FAERS Safety Report 24151469 (Version 1)
Quarter: 2024Q3

REPORT INFORMATION
  Report Type: Spontaneous
  Country: US (occurrence: US)
  Receive Date: 20240730
  Receipt Date: 20240730
  Transmission Date: 20241017
  Serious: No
  Sender: PERRIGO
  Company Number: US-PERRIGO-23US007981

PATIENT
  Age: 40 Year
  Sex: Female
  Weight: 65.76 kg

DRUGS (2)
  1. LORATADINE [Suspect]
     Active Substance: LORATADINE
     Indication: Accidental exposure to product
     Dosage: HALF TABLET, ONCE
     Route: 048
     Dates: start: 20230713, end: 20230713
  2. VITAMIN B6 [Concomitant]
     Active Substance: PYRIDOXINE HYDROCHLORIDE
     Indication: Vomiting
     Dosage: UNK
     Route: 065
     Dates: start: 20230629

REACTIONS (3)
  - Wrong technique in product usage process [Recovered/Resolved]
  - Maternal exposure during pregnancy [Recovered/Resolved]
  - Wrong product administered [Recovered/Resolved]

NARRATIVE: CASE EVENT DATE: 20230713
